FAERS Safety Report 7316377-3 (Version None)
Quarter: 2011Q1

REPORT INFORMATION
  Report Type: 
  Country: None (occurrence: None)
  Receive Date: 20110225
  Receipt Date: 20110212
  Transmission Date: 20110831
  Serious: Yes (Other)
  Sender: FDA-Public Use
  Company Number: CN-CELGENEUS-035-20785-11022189

PATIENT

DRUGS (3)
  1. THALIDOMIDE [Suspect]
     Route: 048
  2. CISPLATIN [Concomitant]
     Dosage: 80-100MG/M2
     Route: 051
  3. GEMCITABINE [Concomitant]
     Route: 051

REACTIONS (13)
  - PHLEBITIS [None]
  - HEPATIC FUNCTION ABNORMAL [None]
  - NAUSEA [None]
  - DECREASED APPETITE [None]
  - CONSTIPATION [None]
  - WHITE BLOOD CELL COUNT DECREASED [None]
  - PLATELET COUNT DECREASED [None]
  - ANAEMIA [None]
  - VOMITING [None]
  - ALOPECIA [None]
  - BONE MARROW FAILURE [None]
  - GASTROINTESTINAL DISORDER [None]
  - RASH [None]
